FAERS Safety Report 12118464 (Version 1)
Quarter: 2016Q1

REPORT INFORMATION
  Report Type: Spontaneous
  Country: US (occurrence: None)
  Receive Date: 20160224
  Receipt Date: 20160224
  Transmission Date: 20160526
  Serious: No
  Sender: FDA-Public Use
  Company Number: None

PATIENT
  Age: 80 Year
  Sex: Female
  Weight: 104 kg

DRUGS (9)
  1. LEVOXYL [Concomitant]
     Active Substance: LEVOTHYROXINE SODIUM
  2. VITAMIN D [Concomitant]
     Active Substance: CHOLECALCIFEROL
  3. MAG [Concomitant]
  4. FULL SIZE ASPIRIN [Concomitant]
  5. COREG [Concomitant]
     Active Substance: CARVEDILOL
  6. FISH OIL [Concomitant]
     Active Substance: FISH OIL
  7. REPATHA [Suspect]
     Active Substance: EVOLOCUMAB
     Indication: LOW DENSITY LIPOPROTEIN INCREASED
     Dosage: SINGLE - PREFILLED AUTO INJECTIOR
     Dates: start: 20151117, end: 20160126
  8. LISINOPRIL. [Concomitant]
     Active Substance: LISINOPRIL
  9. VITAMIN B12 [Concomitant]
     Active Substance: CYANOCOBALAMIN

REACTIONS (13)
  - Muscle disorder [None]
  - Vascular rupture [None]
  - Influenza like illness [None]
  - Back pain [None]
  - Constipation [None]
  - Muscle spasticity [None]
  - Gingival bleeding [None]
  - Muscle rigidity [None]
  - Chills [None]
  - Pruritus [None]
  - Gastric disorder [None]
  - Nausea [None]
  - Abdominal discomfort [None]

NARRATIVE: CASE EVENT DATE: 20151117
